FAERS Safety Report 13923074 (Version 1)
Quarter: 2017Q3

REPORT INFORMATION
  Report Type: Report from Study
  Country: None (occurrence: BR)
  Receive Date: 20170831
  Receipt Date: 20170831
  Transmission Date: 20171127
  Serious: Yes (Disabling, Other)
  Sender: FDA-Public Use
  Company Number: BR-ABBVIE-17K-020-2082671-00

PATIENT
  Sex: Female

DRUGS (1)
  1. HUMIRA [Suspect]
     Active Substance: ADALIMUMAB
     Indication: RHEUMATOID ARTHRITIS
     Route: 058
     Dates: start: 20121101

REACTIONS (14)
  - Dizziness [Recovered/Resolved]
  - Gait inability [Recovered/Resolved]
  - Hypoaesthesia oral [Recovered/Resolved]
  - Vomiting [Recovered/Resolved]
  - Hair disorder [Recovered/Resolved]
  - Insomnia [Recovered/Resolved]
  - Labyrinthitis [Recovered/Resolved]
  - Hypertension [Recovered/Resolved]
  - Mental disorder [Recovered/Resolved]
  - Head discomfort [Recovered/Resolved]
  - Daydreaming [Recovered/Resolved]
  - Pharyngeal hypoaesthesia [Recovered/Resolved]
  - Diabetes mellitus [Recovered/Resolved]
  - Retching [Recovered/Resolved]

NARRATIVE: CASE EVENT DATE: 2017
